FAERS Safety Report 15837327 (Version 1)
Quarter: 2019Q1

REPORT INFORMATION
  Report Type: Report from Study
  Country: GT (occurrence: GT)
  Receive Date: 20190117
  Receipt Date: 20190117
  Transmission Date: 20190417
  Serious: Yes (Death, Hospitalization)
  Sender: FDA-Public Use
  Company Number: PHHY2018GT193364

PATIENT
  Age: 90 Year
  Sex: Male

DRUGS (2)
  1. VYMADA [Suspect]
     Active Substance: SACUBITRIL\VALSARTAN
     Indication: PRODUCT USED FOR UNKNOWN INDICATION
     Dosage: 100 MG, UNK
     Route: 065
     Dates: start: 2017
  2. VYMADA [Suspect]
     Active Substance: SACUBITRIL\VALSARTAN
     Dosage: 200 MG, UNK
     Route: 065

REACTIONS (5)
  - Femur fracture [Unknown]
  - Hip fracture [Unknown]
  - Fall [Unknown]
  - Death [Fatal]
  - Pneumonia [Unknown]

NARRATIVE: CASE EVENT DATE: 20181229
